FAERS Safety Report 13342375 (Version 2)
Quarter: 2017Q1

REPORT INFORMATION
  Report Type: Spontaneous
  Country: US (occurrence: US)
  Receive Date: 20170316
  Receipt Date: 20170328
  Transmission Date: 20170428
  Serious: No
  Sender: FDA-Public Use
  Company Number: US-ASTELLAS-2017US001497

PATIENT
  Sex: Female

DRUGS (1)
  1. PROTOPIC [Suspect]
     Active Substance: TACROLIMUS
     Indication: VITILIGO
     Dosage: UNK UNK, TWICE DAILY
     Route: 061

REACTIONS (1)
  - Off label use [Not Recovered/Not Resolved]
